FAERS Safety Report 16076463 (Version 1)
Quarter: 2019Q1

REPORT INFORMATION
  Report Type: Report from Study
  Country: ES (occurrence: ES)
  Receive Date: 20190315
  Receipt Date: 20190315
  Transmission Date: 20190418
  Serious: Yes (Other)
  Sender: FDA-Public Use
  Company Number: ES-TEVA-2019-ES-1023374

PATIENT
  Age: 48 Year
  Sex: Female

DRUGS (5)
  1. FLECAINIDA [Concomitant]
     Route: 048
     Dates: start: 20180720, end: 20180810
  2. BISOPROLOL [Concomitant]
     Active Substance: BISOPROLOL
     Route: 048
     Dates: start: 20151111, end: 20170908
  3. ALPRAZOLAM. [Concomitant]
     Active Substance: ALPRAZOLAM
     Route: 048
  4. FLECAINIDA [Concomitant]
     Route: 048
     Dates: start: 20180123, end: 20180130
  5. COPAXONE [Suspect]
     Active Substance: GLATIRAMER ACETATE
     Indication: RELAPSING-REMITTING MULTIPLE SCLEROSIS
     Route: 058
     Dates: start: 20151001

REACTIONS (1)
  - Lipodystrophy acquired [Not Recovered/Not Resolved]

NARRATIVE: CASE EVENT DATE: 20160726
